FAERS Safety Report 14232240 (Version 1)
Quarter: 2017Q4

REPORT INFORMATION
  Report Type: Spontaneous
  Country: JP (occurrence: JP)
  Receive Date: 20171128
  Receipt Date: 20171128
  Transmission Date: 20180321
  Serious: Yes (Other)
  Sender: FDA-Public Use
  Company Number: JP-ALLERGAN-1767675US

PATIENT
  Age: 85 Year
  Sex: Female

DRUGS (2)
  1. MEMANTINE HCL - BP [Suspect]
     Active Substance: MEMANTINE
     Dosage: 5 MG, QD
     Route: 065
     Dates: start: 201701
  2. MEMANTINE HCL - BP [Suspect]
     Active Substance: MEMANTINE
     Indication: PRODUCT USED FOR UNKNOWN INDICATION
     Dosage: 20 MG, QD
     Route: 065
     Dates: start: 201703

REACTIONS (2)
  - Therapy cessation [Unknown]
  - Seizure [Unknown]

NARRATIVE: CASE EVENT DATE: 201709
